FAERS Safety Report 9645802 (Version 3)
Quarter: 2014Q2

REPORT INFORMATION
  Report Type: Report from Study
  Country: AU (occurrence: AU)
  Receive Date: 20131025
  Receipt Date: 20140414
  Transmission Date: 20141212
  Serious: Yes (Hospitalization)
  Sender: FDA-Public Use
  Company Number: AU-GLAXOSMITHKLINE-Z0021464A

PATIENT
  Age: 61 Year
  Sex: Male
  Weight: 133.6 kg

DRUGS (5)
  1. OFATUMUMAB [Suspect]
     Indication: CHRONIC LYMPHOCYTIC LEUKAEMIA
     Route: 042
     Dates: start: 20120116
  2. PREDNISOLONE [Suspect]
     Indication: RHINITIS
     Dosage: 50MG PER DAY
     Route: 048
     Dates: start: 20130917, end: 20130928
  3. PREDNISOLONE [Suspect]
     Indication: RHINITIS
     Dosage: 37.5MG PER DAY
     Route: 048
     Dates: start: 20130929, end: 20131009
  4. PREDNISOLONE [Suspect]
     Indication: RHINITIS
     Dosage: 25MG PER DAY
     Route: 048
     Dates: start: 20131010, end: 20131020
  5. PREDNISOLONE [Suspect]
     Indication: RHINITIS
     Dosage: 12.5MG PER DAY
     Route: 045
     Dates: start: 20131031, end: 20131031

REACTIONS (1)
  - Glucose tolerance impaired [Not Recovered/Not Resolved]
